FAERS Safety Report 17681579 (Version 1)
Quarter: 2020Q2

REPORT INFORMATION
  Report Type: Spontaneous
  Country: PL (occurrence: PL)
  Receive Date: 20200417
  Receipt Date: 20200417
  Transmission Date: 20200714
  Serious: Yes (Other)
  Sender: FDA-Public Use
  Company Number: PL-NOVOPROD-723460

PATIENT
  Age: 52 Year
  Sex: Male
  Weight: 85 kg

DRUGS (1)
  1. NOVOMIX 30 PENFILL [Suspect]
     Active Substance: INSULIN ASPART
     Indication: DIABETES MELLITUS
     Dosage: 18 IU, QD (IN THE EVENING)
     Dates: start: 20170714, end: 20170715

REACTIONS (4)
  - Vomiting [Recovered/Resolved]
  - Disturbance in attention [Recovered/Resolved]
  - Fatigue [Recovered/Resolved]
  - Blood glucose increased [Recovered/Resolved]

NARRATIVE: CASE EVENT DATE: 20170714
